FAERS Safety Report 7921921-9 (Version None)
Quarter: 2011Q4

REPORT INFORMATION
  Report Type: 
  Country: None (occurrence: None)
  Receive Date: 20111117
  Receipt Date: 20111113
  Transmission Date: 20120403
  Serious: Yes (Other)
  Sender: FDA-Public Use
  Company Number: AT-ROCHE-1013136

PATIENT

DRUGS (1)
  1. AVASTIN [Suspect]
     Indication: NEOPLASM
     Route: 042

REACTIONS (3)
  - HYPERTENSION [None]
  - CARDIAC FUNCTION TEST ABNORMAL [None]
  - HYPERTONIA [None]
